FAERS Safety Report 9836559 (Version 1)
Quarter: 2013Q4

REPORT INFORMATION
  Report Type: Spontaneous
  Country: US (occurrence: None)
  Receive Date: 20131121
  Receipt Date: 20131121
  Transmission Date: 20140711
  Serious: Yes (Other)
  Sender: FDA-Public Use
  Company Number: 1000050427

PATIENT
  Age: 72 Year
  Sex: Male

DRUGS (10)
  1. TUDORZA PRESSAIR (ACLIDINIUM BROMIDE) (400 MICROGRAM, POWDER) [Suspect]
     Indication: CHRONIC OBSTRUCTIVE PULMONARY DISEASE
     Dosage: 400 MCG, 2 IN 1 D
     Route: 055
     Dates: start: 201309, end: 201310
  2. SYMBICORT [Concomitant]
  3. HUMIRA [Concomitant]
  4. METHOTREXATE [Concomitant]
  5. TRAMADOL [Concomitant]
  6. MELOXICAN [Concomitant]
  7. GABAPENTIN [Concomitant]
  8. AMLODIPINE [Concomitant]
  9. HYDROCHLOROTHIAZIDE [Concomitant]
  10. VENTOLIN HFA [Concomitant]

REACTIONS (1)
  - Cough [None]
